FAERS Safety Report 9529848 (Version 4)
Quarter: 2014Q1

REPORT INFORMATION
  Report Type: Report from Study
  Country: CA (occurrence: CA)
  Receive Date: 20130917
  Receipt Date: 20140307
  Transmission Date: 20141002
  Serious: Yes (Hospitalization, Other)
  Sender: FDA-Public Use
  Company Number: CA-ROCHE-1192760

PATIENT
  Sex: Female
  Weight: 68 kg

DRUGS (10)
  1. RITUXAN [Suspect]
     Indication: SYSTEMIC LUPUS ERYTHEMATOSUS
     Dosage: LASD DOSE WAS ON 09/SEP/2013
     Route: 042
     Dates: start: 20100224
  2. PLAQUENIL [Suspect]
     Indication: PRODUCT USED FOR UNKNOWN INDICATION
     Route: 065
     Dates: end: 201304
  3. CELLCEPT [Concomitant]
     Indication: PRODUCT USED FOR UNKNOWN INDICATION
     Route: 065
  4. RAMIPRIL [Concomitant]
  5. ACTONEL [Concomitant]
  6. SEPTRA [Concomitant]
  7. DIPHENHYDRAMINE HCL [Concomitant]
     Indication: PREMEDICATION
     Route: 048
     Dates: start: 20100310
  8. ACETAMINOPHEN [Concomitant]
     Route: 048
     Dates: start: 20100310
  9. METHYLPREDNISOLONE [Concomitant]
     Route: 042
     Dates: start: 20100310
  10. PREDNISONE [Concomitant]

REACTIONS (6)
  - Red blood cell count decreased [Unknown]
  - Lupus nephritis [Not Recovered/Not Resolved]
  - Overdose [Unknown]
  - Hypertension [Unknown]
  - Suicide attempt [Unknown]
  - Off label use [Unknown]
